FAERS Safety Report 10235062 (Version 1)
Quarter: 2014Q2

REPORT INFORMATION
  Report Type: Report from Study
  Country: US (occurrence: US)
  Receive Date: 20140613
  Receipt Date: 20140613
  Transmission Date: 20141212
  Serious: No
  Sender: FDA-Public Use
  Company Number: PHEH2014US011838

PATIENT
  Sex: Male
  Weight: 117.1 kg

DRUGS (9)
  1. TASIGNA [Suspect]
     Indication: CHRONIC MYELOID LEUKAEMIA
     Dosage: 300 MG, BID
     Route: 048
     Dates: start: 20140605
  2. TYLENOL [Concomitant]
     Dosage: UNK UKN, UNK
  3. HYDROXYUREA [Concomitant]
     Dosage: UNK UKN, UNK
  4. ALLOPURINOL [Concomitant]
     Dosage: UNK UKN, UNK
  5. ALBUTEROL [Concomitant]
     Dosage: UNK UKN, UNK
  6. DEXTROAMPHETAMINE [Concomitant]
     Dosage: 20 MG, UNK
  7. MUPIROCIN [Concomitant]
     Dosage: 2 %, UNK
  8. PROCHLORPERAZINE [Concomitant]
     Dosage: 10 MG, UNK
  9. AMOXI-CLAV [Concomitant]
     Dosage: 875-125 MG

REACTIONS (9)
  - Nasal dryness [Not Recovered/Not Resolved]
  - Nasal congestion [Not Recovered/Not Resolved]
  - Rhinorrhoea [Not Recovered/Not Resolved]
  - Burning sensation [Unknown]
  - Headache [Recovering/Resolving]
  - Nasopharyngitis [Unknown]
  - Sinusitis [Unknown]
  - Pyrexia [Not Recovered/Not Resolved]
  - Head discomfort [Not Recovered/Not Resolved]
